FAERS Safety Report 4344375-0 (Version None)
Quarter: 2004Q2

REPORT INFORMATION
  Report Type: 
  Country: None (occurrence: None)
  Receive Date: 20040419
  Receipt Date: 20030912
  Transmission Date: 20050107
  Serious: Yes (Death, Hospitalization)
  Sender: FDA-Public Use
  Company Number: A-CH2003-02339

PATIENT
  Age: 76 Year
  Weight: 105 kg

DRUGS (10)
  1. TRACLEER [Suspect]
     Indication: PULMONARY HYPERTENSION
     Dosage: 62.5 MG, BID, ORAL; SEE IMAGE
     Route: 048
     Dates: start: 20020919, end: 20021017
  2. TRACLEER [Suspect]
     Indication: PULMONARY HYPERTENSION
     Dosage: 62.5 MG, BID, ORAL; SEE IMAGE
     Route: 048
     Dates: start: 20021018, end: 20030723
  3. PREVISCAN (FLUINDIONE) [Concomitant]
  4. FERROUS SULFATE TAB [Concomitant]
  5. OMEPRAZOLE [Concomitant]
  6. GLUCOPHATE (METFORMIN HYDROCHLORIDE) [Concomitant]
  7. ZESTRIL [Concomitant]
  8. HYPERIUM (RILUMENIDINE) [Concomitant]
  9. LASIX [Concomitant]
  10. POTASSIUM CHLORIDE [Concomitant]

REACTIONS (5)
  - CONDITION AGGRAVATED [None]
  - DYSPNOEA EXACERBATED [None]
  - HYPOXIA [None]
  - PULMONARY HYPERTENSION [None]
  - RIGHT VENTRICULAR FAILURE [None]
